FAERS Safety Report 15000061 (Version 1)
Quarter: 2018Q2

REPORT INFORMATION
  Report Type: Spontaneous
  Country: US (occurrence: US)
  Receive Date: 20180521
  Receipt Date: 20180521
  Transmission Date: 20180711
  Serious: No
  Sender: FDA-Public Use
  Company Number: None

PATIENT
  Age: 62 Year
  Sex: Female

DRUGS (1)
  1. ZARXIO [Suspect]
     Active Substance: FILGRASTIM-SNDZ
     Indication: BLOOD DISORDER
     Route: 058
     Dates: start: 20180428

REACTIONS (5)
  - Dyspnoea [None]
  - Swollen tongue [None]
  - Eye swelling [None]
  - Palpitations [None]
  - Nasal oedema [None]

NARRATIVE: CASE EVENT DATE: 20180519
